FAERS Safety Report 8738187 (Version 2)
Quarter: 2013Q4

REPORT INFORMATION
  Report Type: Spontaneous
  Country: GB (occurrence: GB)
  Receive Date: 20120823
  Receipt Date: 20131031
  Transmission Date: 20140711
  Serious: Yes (Hospitalization)
  Sender: FDA-Public Use
  Company Number: GB-009507513-1208GBR006024

PATIENT
  Sex: 0

DRUGS (2)
  1. JANUVIA [Suspect]
     Route: 048
  2. VALPROATE SODIUM [Concomitant]
     Indication: EPILEPSY

REACTIONS (1)
  - Epilepsy [Recovered/Resolved]
